FAERS Safety Report 6815128 (Version 10)
Quarter: 2012Q4

REPORT INFORMATION
  Report Type: Report from Study
  Country: US (occurrence: US)
  Receive Date: 20081118
  Receipt Date: 20121024
  Transmission Date: 20130627
  Serious: Yes (Death, Hospitalization)
  Sender: FDA-Public Use
  Company Number: US-AMGEN-US317881

PATIENT
  Age: 74 Year
  Sex: Male

DRUGS (7)
  1. PANITUMUMAB [Suspect]
     Indication: SQUAMOUS CELL CARCINOMA
     Dosage: UNK
     Route: 042
     Dates: start: 20080922, end: 20081013
  2. CISPLATIN [Concomitant]
     Indication: SQUAMOUS CELL CARCINOMA
     Dosage: 128 mg, UNK
     Route: 042
     Dates: start: 20080922, end: 20081013
  3. ZOLEDRONIC ACID [Concomitant]
     Indication: SQUAMOUS CELL CARCINOMA
     Dosage: 4 mg, UNK
     Route: 042
     Dates: start: 20080912, end: 20081013
  4. DOCETAXEL [Concomitant]
     Indication: SQUAMOUS CELL CARCINOMA
     Dosage: 128 mg, UNK
     Route: 042
     Dates: start: 20080922, end: 20081013
  5. NEULASTA [Concomitant]
     Dosage: 6 mg, UNK
     Route: 058
  6. TAMSULOSIN HCL [Concomitant]
  7. COUMADIN [Concomitant]
     Dosage: UNK
     Dates: end: 20080924

REACTIONS (4)
  - Renal failure acute [Fatal]
  - Neutropenia [Unknown]
  - Musculoskeletal chest pain [Recovered/Resolved]
  - International normalised ratio increased [Recovered/Resolved]
